FAERS Safety Report 21704969 (Version 8)
Quarter: 2024Q1

REPORT INFORMATION
  Report Type: Report from Study
  Country: US (occurrence: US)
  Receive Date: 20221209
  Receipt Date: 20240207
  Transmission Date: 20240410
  Serious: Yes (Hospitalization, Other)
  Sender: FDA-Public Use
  Company Number: US-ABBVIE-4230102

PATIENT
  Age: 68 Year
  Sex: Female

DRUGS (6)
  1. HUMIRA [Suspect]
     Active Substance: ADALIMUMAB
     Indication: Uveitis
     Dosage: LAST ADMIN DATE: 2022, FORM STRENGTH: 40 MILLIGRAM?CITRATE FREE
     Route: 058
     Dates: start: 20210207
  2. HUMIRA [Suspect]
     Active Substance: ADALIMUMAB
     Dosage: FORM STRENGTH: 40 MILLIGRAM?CITRATE FREE
     Route: 058
  3. HUMIRA [Suspect]
     Active Substance: ADALIMUMAB
     Dosage: FORM STRENGTH: 40 MILLIGRAM?CITRATE FREE
     Route: 058
  4. HUMIRA [Suspect]
     Active Substance: ADALIMUMAB
     Dosage: FORM STRENGTH: 40 MILLIGRAM?CITRATE FREE
     Route: 058
     Dates: start: 20220924
  5. HUMIRA [Suspect]
     Active Substance: ADALIMUMAB
     Dosage: FORM STRENGTH: 40 MILLIGRAM?CITRATE FREE
     Route: 058
  6. HUMIRA [Suspect]
     Active Substance: ADALIMUMAB
     Dosage: FORM STRENGTH: 40 MILLIGRAM?CITRATE FREE
     Route: 058

REACTIONS (17)
  - Knee arthroplasty [Recovering/Resolving]
  - Arthropathy [Recovering/Resolving]
  - Dysstasia [Unknown]
  - Joint range of motion decreased [Unknown]
  - Meniscus injury [Unknown]
  - Adhesion [Recovering/Resolving]
  - Joint injury [Recovering/Resolving]
  - Weight increased [Unknown]
  - Osteoarthritis [Unknown]
  - Knee arthroplasty [Recovering/Resolving]
  - Spinal osteoarthritis [Recovering/Resolving]
  - Blood cholesterol abnormal [Unknown]
  - Artificial crown procedure [Recovering/Resolving]
  - Gingival recession [Recovering/Resolving]
  - Pain [Unknown]
  - Gait disturbance [Unknown]
  - Hypertension [Unknown]

NARRATIVE: CASE EVENT DATE: 20220906
